FAERS Safety Report 13239321 (Version 2)
Quarter: 2018Q1

REPORT INFORMATION
  Report Type: Spontaneous
  Country: None (occurrence: US)
  Receive Date: 20170216
  Receipt Date: 20180212
  Transmission Date: 20180508
  Serious: No
  Sender: FDA-Public Use
  Company Number: US-AMAG PHARMACEUTICALS, INC.-AMAG201602584

PATIENT

DRUGS (1)
  1. MAKENA [Suspect]
     Active Substance: HYDROXYPROGESTERONE CAPROATE
     Indication: FOETAL EXPOSURE DURING PREGNANCY
     Dosage: 250 MG/ML, WEEKLY
     Route: 065
     Dates: start: 20160303, end: 20160615

REACTIONS (1)
  - Viral infection [Unknown]

NARRATIVE: CASE EVENT DATE: 201611
